FAERS Safety Report 7339260-6 (Version None)
Quarter: 2011Q1

REPORT INFORMATION
  Report Type: 
  Country: None (occurrence: None)
  Receive Date: 20110228
  Receipt Date: 20110210
  Transmission Date: 20110831
  Serious: Yes (Hospitalization)
  Sender: FDA-Public Use
  Company Number: 027595

PATIENT
  Age: 24 Year
  Sex: Male
  Weight: 68 kg

DRUGS (2)
  1. KEPPRA [Suspect]
     Indication: EPILEPSY
     Dosage: (1500 MG ORAL)
     Route: 048
     Dates: start: 20000101
  2. TEGRETOL [Concomitant]

REACTIONS (1)
  - ROAD TRAFFIC ACCIDENT [None]
